FAERS Safety Report 7906654-7 (Version None)
Quarter: 2011Q4

REPORT INFORMATION
  Report Type: 
  Country: None (occurrence: None)
  Receive Date: 20111110
  Receipt Date: 20111003
  Transmission Date: 20120403
  Serious: Yes (Hospitalization)
  Sender: FDA-Public Use
  Company Number: US-ACTELION-A-NJ2011-56633

PATIENT

DRUGS (4)
  1. COUMADIN [Concomitant]
  2. CORTISONE ACETATE [Suspect]
  3. TRACLEER [Suspect]
     Indication: PULMONARY ARTERIAL HYPERTENSION
     Dosage: UNK
     Route: 048
     Dates: start: 20090511
  4. PLAVIX [Concomitant]

REACTIONS (1)
  - ADVERSE DRUG REACTION [None]
